FAERS Safety Report 7420697-1 (Version None)
Quarter: 2011Q2

REPORT INFORMATION
  Report Type: 
  Country: None (occurrence: None)
  Receive Date: 20110418
  Receipt Date: 20110408
  Transmission Date: 20111010
  Serious: Yes (Death, Life-Threatening)
  Sender: FDA-Public Use
  Company Number: JP-ROCHE-750367

PATIENT
  Age: 83 Year
  Sex: Male

DRUGS (6)
  1. IRINOTECAN HYDROCHLORIDE [Concomitant]
     Route: 041
     Dates: start: 20101029, end: 20101029
  2. XELODA [Suspect]
     Indication: LARGE INTESTINE CARCINOMA
     Dosage: REPORTED AS XELODA: 300. DOSAGE IS UNCERTAIN.
     Route: 048
     Dates: start: 20100331, end: 20100910
  3. IRINOTECAN HYDROCHLORIDE [Concomitant]
     Dosage: DOSAGE IS UNCERTAIN.
     Route: 041
     Dates: start: 20100917, end: 20101008
  4. TS-1 [Concomitant]
     Dosage: DOSAGE IS UNCERTAIN.
     Route: 048
     Dates: start: 20100917, end: 20101008
  5. AVASTIN [Suspect]
     Indication: LARGE INTESTINE CARCINOMA
     Dosage: DOSAGE IS UNCERTAIN.
     Route: 041
     Dates: start: 20100301, end: 20101201
  6. TS-1 [Concomitant]
     Dosage: NOTE: DOSAGE IS UNCERTAIN.
     Route: 048
     Dates: start: 20101029, end: 20101029

REACTIONS (1)
  - PERITONITIS [None]
